FAERS Safety Report 7549131-8 (Version None)
Quarter: 2011Q2

REPORT INFORMATION
  Report Type: 
  Country: None (occurrence: None)
  Receive Date: 20110615
  Receipt Date: 20110601
  Transmission Date: 20111010
  Serious: Yes (Other)
  Sender: FDA-Public Use
  Company Number: PHHY2011US48157

PATIENT

DRUGS (2)
  1. GLEEVEC [Suspect]
  2. NEULASTA [Concomitant]

REACTIONS (2)
  - METASTASES TO BREAST [None]
  - BREAST CANCER STAGE I [None]
